FAERS Safety Report 10485981 (Version 2)
Quarter: 2014Q4

REPORT INFORMATION
  Report Type: Report from Study
  Country: US (occurrence: US)
  Receive Date: 20141001
  Receipt Date: 20141001
  Transmission Date: 20150528
  Serious: Yes (Other)
  Sender: FDA-Public Use
  Company Number: US-AMGEN-USASP2014062964

PATIENT
  Age: 68 Year
  Sex: Female
  Weight: 102.4 kg

DRUGS (2)
  1. ENBREL [Suspect]
     Active Substance: ETANERCEPT
     Indication: PSORIASIS
     Dosage: 50 MG, 2 TIMES/WK
     Route: 065
     Dates: start: 20130815, end: 201407
  2. XANAX [Concomitant]
     Active Substance: ALPRAZOLAM
     Dosage: 0.5 MG, UNK

REACTIONS (7)
  - Psoriasis [Unknown]
  - Drug ineffective [Unknown]
  - Synovial cyst [Unknown]
  - Type 2 diabetes mellitus [Unknown]
  - Bronchitis [Recovered/Resolved]
  - Infection [Unknown]
  - Cellulitis [Recovered/Resolved]
